FAERS Safety Report 8736561 (Version 3)
Quarter: 2012Q4

REPORT INFORMATION
  Report Type: 
  Country: GB (occurrence: GB)
  Receive Date: 20120822
  Receipt Date: 20121018
  Transmission Date: 20130627
  Serious: Yes (Death, Other)
  Sender: FDA-Public Use
  Company Number: GB-PFIZER INC-2012200799

PATIENT
  Age: 24 Year
  Sex: Male

DRUGS (1)
  1. VIAGRA [Suspect]
     Indication: PERFORMANCE FEAR

REACTIONS (4)
  - Off label use [Unknown]
  - Completed suicide [Fatal]
  - Depressed mood [Unknown]
  - Drug dependence [Unknown]
